FAERS Safety Report 5238668-2 (Version None)
Quarter: 2007Q1

REPORT INFORMATION
  Report Type: 
  Country: None (occurrence: None)
  Receive Date: 20070215
  Receipt Date: 20070205
  Transmission Date: 20070707
  Serious: Yes (Other)
  Sender: FDA-Public Use
  Company Number: JP-SANOFI-SYNTHELABO-A01200610378

PATIENT
  Sex: Male
  Weight: 65.8 kg

DRUGS (2)
  1. GASLON N [Concomitant]
     Indication: GASTRITIS
     Route: 048
     Dates: start: 20051210, end: 20070108
  2. PLAVIX [Suspect]
     Indication: TRANSIENT ISCHAEMIC ATTACK
     Route: 048
     Dates: start: 20061118, end: 20061119

REACTIONS (6)
  - BLOOD BILIRUBIN INCREASED [None]
  - BLOOD CREATINE PHOSPHOKINASE INCREASED [None]
  - FATIGUE [None]
  - FEELING ABNORMAL [None]
  - NASOPHARYNGITIS [None]
  - SOMNOLENCE [None]
